FAERS Safety Report 21891227 (Version 1)
Quarter: 2023Q1

REPORT INFORMATION
  Report Type: Spontaneous
  Country: US (occurrence: None)
  Receive Date: 20230118
  Receipt Date: 20230118
  Transmission Date: 20230418
  Serious: Yes (Hospitalization)
  Sender: FDA-Public Use
  Company Number: None

PATIENT
  Age: 54 Year
  Sex: Female

DRUGS (3)
  1. HOMEOPATHICS [Suspect]
     Active Substance: HOMEOPATHICS
     Indication: Exposure to toxic agent
  2. ARMOUR THYROID 135 [Concomitant]
  3. PROGESTERONE [Concomitant]
     Active Substance: PROGESTERONE

REACTIONS (12)
  - Meningitis pneumococcal [None]
  - Legal problem [None]
  - Victim of crime [None]
  - Prescribed overdose [None]
  - Fatigue [None]
  - Asthenia [None]
  - Dizziness [None]
  - Dyspnoea [None]
  - Chest pain [None]
  - Back pain [None]
  - Joint swelling [None]
  - Peripheral swelling [None]

NARRATIVE: CASE EVENT DATE: 20221230
